FAERS Safety Report 7595698-3 (Version None)
Quarter: 2011Q3

REPORT INFORMATION
  Report Type: 
  Country: None (occurrence: None)
  Receive Date: 20110707
  Receipt Date: 20110617
  Transmission Date: 20111222
  Serious: No
  Sender: FDA-Public Use
  Company Number: US-B.I. PHARMACEUTICALS,INC./RIDGEFIELD-2011-BP-15770BP

PATIENT
  Sex: Male

DRUGS (5)
  1. METOPROLOL TARTRATE [Concomitant]
     Indication: CARDIAC DISORDER
     Dosage: 50 MG
     Route: 048
  2. DILTIAZEM [Concomitant]
     Indication: CARDIAC DISORDER
     Route: 048
  3. METFORMIN HCL [Concomitant]
     Indication: GLUCOSE TOLERANCE IMPAIRED
     Route: 048
  4. PRADAXA [Suspect]
     Indication: ATRIAL FIBRILLATION
     Dosage: 300 MG
     Route: 048
     Dates: start: 20110610
  5. A BUNCH OF VITMAINS [Concomitant]
     Route: 048

REACTIONS (5)
  - RECTAL DISCHARGE [None]
  - ASTHENIA [None]
  - ANORECTAL DISCOMFORT [None]
  - RASH [None]
  - SLEEP DISORDER [None]
